FAERS Safety Report 6293752-X (Version None)
Quarter: 2009Q3

REPORT INFORMATION
  Report Type: 
  Country: None (occurrence: None)
  Receive Date: 20090803
  Receipt Date: 20090723
  Transmission Date: 20100115
  Serious: Yes (Hospitalization)
  Sender: FDA-Public Use
  Company Number: AU-ASTRAZENECA-2009SE05646

PATIENT
  Age: 32049 Day
  Sex: Female

DRUGS (8)
  1. ATACAND [Suspect]
     Indication: ESSENTIAL HYPERTENSION
     Route: 048
     Dates: end: 20070904
  2. BACTRIM [Suspect]
     Indication: URINARY TRACT DISORDER
     Dates: start: 20070819, end: 20070904
  3. MOBIC [Suspect]
     Indication: OSTEOARTHRITIS
  4. UREX [Suspect]
     Route: 048
  5. CARDIZEM [Concomitant]
     Route: 048
  6. DIGOXIN [Concomitant]
  7. OXAZEPAM [Concomitant]
  8. WARFARIN SODIUM [Concomitant]

REACTIONS (3)
  - DYSPNOEA [None]
  - PRURITUS [None]
  - RENAL FAILURE ACUTE [None]
